FAERS Safety Report 18190058 (Version 2)
Quarter: 2021Q2

REPORT INFORMATION
  Report Type: Other
  Country: AU (occurrence: AU)
  Receive Date: 20200825
  Receipt Date: 20210430
  Transmission Date: 20210717
  Serious: Yes (Other)
  Sender: FDA-Public Use
  Company Number: AU-TOLMAR, INC.-19AU001030

PATIENT
  Sex: Male

DRUGS (2)
  1. ELIGARD [Suspect]
     Active Substance: LEUPROLIDE ACETATE
     Indication: PROSTATE CANCER
     Dosage: 7.5 MG, Q 1 MONTH
     Route: 058
     Dates: start: 20190912, end: 20191107
  2. ELIGARD [Suspect]
     Active Substance: LEUPROLIDE ACETATE
     Indication: PROSTATE CANCER
     Dosage: 30 MG, Q 4 MONTH
     Route: 065
     Dates: start: 20200402

REACTIONS (7)
  - Night sweats [Unknown]
  - General physical health deterioration [Not Recovered/Not Resolved]
  - Asthenia [Unknown]
  - Mobility decreased [Not Recovered/Not Resolved]
  - Cachexia [Unknown]
  - Nocturia [Not Recovered/Not Resolved]
  - Decreased appetite [Not Recovered/Not Resolved]
